FAERS Safety Report 7503745-X (Version None)
Quarter: 2011Q2

REPORT INFORMATION
  Report Type: 
  Country: None (occurrence: None)
  Receive Date: 20110525
  Receipt Date: 20110521
  Transmission Date: 20111010
  Serious: Yes (Life-Threatening)
  Sender: FDA-Public Use
  Company Number: US-B.I. PHARMACEUTICALS,INC./RIDGEFIELD-2011-BP-13728BP

PATIENT
  Age: 86 Year
  Sex: Female

DRUGS (4)
  1. PPI [Concomitant]
  2. PRADAXA [Suspect]
     Indication: ATRIAL FIBRILLATION
  3. NAPROSYN [Concomitant]
  4. ASPIRIN [Concomitant]

REACTIONS (2)
  - SICK SINUS SYNDROME [None]
  - GASTROINTESTINAL HAEMORRHAGE [None]
